FAERS Safety Report 24196712 (Version 2)
Quarter: 2025Q2

REPORT INFORMATION
  Report Type: Spontaneous
  Country: CA (occurrence: CA)
  Receive Date: 20240810
  Receipt Date: 20250411
  Transmission Date: 20250717
  Serious: Yes (Death, Hospitalization, Other)
  Sender: HIKMA
  Company Number: CA-HIKMA PHARMACEUTICALS-CA-H14001-24-07472

PATIENT
  Age: 58 Year
  Sex: Male

DRUGS (11)
  1. LEVOFLOXACIN [Suspect]
     Active Substance: LEVOFLOXACIN
     Indication: Product used for unknown indication
     Route: 065
  2. SANDOSTATIN [Suspect]
     Active Substance: OCTREOTIDE ACETATE
     Indication: Neuroendocrine tumour
     Dosage: 30 MILLIGRAM, MONTHLY
     Route: 030
  3. SANDOSTATIN [Suspect]
     Active Substance: OCTREOTIDE ACETATE
     Route: 058
  4. ASPIRIN [Concomitant]
     Active Substance: ASPIRIN
     Indication: Product used for unknown indication
     Route: 048
  5. BISOPROLOL [Concomitant]
     Active Substance: BISOPROLOL
     Indication: Product used for unknown indication
     Dosage: 2.5 MILLIGRAM, QD
     Route: 065
  6. FERROUS SULFATE [Concomitant]
     Active Substance: FERROUS SULFATE
     Indication: Product used for unknown indication
     Route: 048
  7. FLUOXETINE [Concomitant]
     Active Substance: FLUOXETINE HYDROCHLORIDE
     Indication: Product used for unknown indication
     Route: 048
  8. INDAPAMIDE [Concomitant]
     Active Substance: INDAPAMIDE
     Indication: Product used for unknown indication
     Route: 048
  9. FERROUS SULFATE ANHYDROUS [Concomitant]
     Active Substance: FERROUS SULFATE ANHYDROUS
     Indication: Product used for unknown indication
     Route: 048
  10. NITROGLYCERIN [Concomitant]
     Active Substance: NITROGLYCERIN
     Indication: Product used for unknown indication
     Route: 060
  11. PANCREATIN [Concomitant]
     Active Substance: PANCRELIPASE
     Indication: Product used for unknown indication
     Route: 048

REACTIONS (23)
  - Death [Fatal]
  - Back pain [Fatal]
  - Blood pressure increased [Fatal]
  - Bone pain [Fatal]
  - Cardiac disorder [Fatal]
  - Chromaturia [Fatal]
  - Decreased appetite [Fatal]
  - Depressed mood [Fatal]
  - Disease recurrence [Fatal]
  - Drug hypersensitivity [Fatal]
  - Fatigue [Fatal]
  - Feeding disorder [Fatal]
  - Hiccups [Fatal]
  - Inguinal hernia [Fatal]
  - Malaise [Fatal]
  - Visual impairment [Fatal]
  - Vomiting [Fatal]
  - COVID-19 [Fatal]
  - Condition aggravated [Fatal]
  - Drug ineffective [Fatal]
  - Drug intolerance [Fatal]
  - Product dose omission issue [Fatal]
  - Hernia [Fatal]
